FAERS Safety Report 6781234-8 (Version None)
Quarter: 2010Q2

REPORT INFORMATION
  Report Type: 
  Country: None (occurrence: None)
  Receive Date: 20100616
  Receipt Date: 20100531
  Transmission Date: 20101027
  Serious: Yes (Hospitalization)
  Sender: FDA-Public Use
  Company Number: TPG2010A00343

PATIENT
  Age: 71 Year
  Sex: Female

DRUGS (8)
  1. ACTOPLUS MET [Suspect]
     Indication: TYPE 2 DIABETES MELLITUS
     Dosage: PIOGLITAZONE/METFORMIN 30/1700 MG, PER ORAL
     Route: 048
     Dates: start: 20091101, end: 20100406
  2. XIPAMIDE (XIPAMIDE) [Concomitant]
  3. TORSEMIDE [Concomitant]
  4. FALITHROM (PHENPROCOUMON) [Concomitant]
  5. DIGITOXIN INJ [Concomitant]
  6. CIPRAMIL (CITALOPRAM HXDROCHLORIDE) [Concomitant]
  7. PRETERAX (INDAPAMXDE, PERINDOPRXL ERBUMINE) [Concomitant]
  8. BELOC ZOK (METOPROLOL SUCCINATE) [Concomitant]

REACTIONS (10)
  - DEHYDRATION [None]
  - DIALYSIS [None]
  - ERYTHEMA [None]
  - FATIGUE [None]
  - FLUID INTAKE REDUCED [None]
  - HYPOPHAGIA [None]
  - MUCOUS MEMBRANE DISORDER [None]
  - RENAL FAILURE ACUTE [None]
  - SICK SINUS SYNDROME [None]
  - VOMITING [None]
